FAERS Safety Report 4668163-0 (Version None)
Quarter: 2005Q2

REPORT INFORMATION
  Report Type: 
  Country: None (occurrence: None)
  Receive Date: 20050523
  Receipt Date: 20040923
  Transmission Date: 20051028
  Serious: Yes (Other)
  Sender: FDA-Public Use
  Company Number: PHEH2004US10321

PATIENT
  Age: 59 Year
  Sex: Male

DRUGS (10)
  1. PAMIDRONATE DISODIUM [Suspect]
     Dates: start: 19980101
  2. ZOLEDRONATE [Suspect]
     Dosage: 4 MG, QMO
  3. SYNTHROID [Concomitant]
  4. VINCRISTINE + ADRIAMYCIN + DEXAMETHASONE [Concomitant]
  5. CARMUSTINE [Concomitant]
  6. VINCRISTINE [Concomitant]
  7. CYTOXAN [Concomitant]
  8. MELPHALAN [Concomitant]
  9. PREDNISONE [Concomitant]
  10. INTERFERON [Concomitant]
     Dates: start: 19981201, end: 20030501

REACTIONS (6)
  - FULL BLOOD COUNT DECREASED [None]
  - HYPERBARIC OXYGEN THERAPY [None]
  - JAW DISORDER [None]
  - MALIGNANT NEOPLASM PROGRESSION [None]
  - OSTEONECROSIS [None]
  - WOUND DEBRIDEMENT [None]
